FAERS Safety Report 13084519 (Version 1)
Quarter: 2017Q1

REPORT INFORMATION
  Report Type: Spontaneous
  Country: GB (occurrence: GB)
  Receive Date: 20170104
  Receipt Date: 20170104
  Transmission Date: 20170428
  Serious: Yes (Hospitalization)
  Sender: FDA-Public Use
  Company Number: GB-TEVA-725082ACC

PATIENT
  Age: 66 Year
  Sex: Male

DRUGS (7)
  1. BISOPROLOL [Suspect]
     Active Substance: BISOPROLOL
     Indication: ATRIAL FIBRILLATION
     Route: 048
     Dates: start: 201603, end: 20161209
  2. DABIGATRAN [Concomitant]
     Active Substance: DABIGATRAN
  3. RAMIPRIL. [Concomitant]
     Active Substance: RAMIPRIL
  4. PENICILLIN [Concomitant]
     Active Substance: PENICILLIN
  5. CICLOSPORIN [Concomitant]
     Active Substance: CYCLOSPORINE
  6. THIAMINE. [Concomitant]
     Active Substance: THIAMINE
  7. VITAMIN B COMPLEX STRONG [Concomitant]

REACTIONS (2)
  - Psoriasis [Recovering/Resolving]
  - Infection [Recovering/Resolving]

NARRATIVE: CASE EVENT DATE: 20161208
